FAERS Safety Report 5534717-2 (Version None)
Quarter: 2007Q4

REPORT INFORMATION
  Report Type: 
  Country: None (occurrence: None)
  Receive Date: 20071130
  Receipt Date: 20071121
  Transmission Date: 20080405
  Serious: Yes (Death, Life-Threatening)
  Sender: FDA-Public Use
  Company Number: DINYF-07-0866

PATIENT
  Age: 82 Year
  Sex: Female
  Weight: 40.2794 kg

DRUGS (8)
  1. DIPRIVAN [Suspect]
     Indication: SEDATION
     Dosage: 100 MILLIGRAM/MILLILITERS (Q 5 TO 10 MINUTES), INTRAVENOUS
     Route: 042
     Dates: start: 20070601
  2. HEART MEDICATIONS [Concomitant]
  3. SYNTHROID [Concomitant]
  4. DIOVAN [Concomitant]
  5. VITAMIN D (ERGOCALICFEROL) [Concomitant]
  6. HEPARIN [Concomitant]
  7. OPIATES [Concomitant]
  8. NARCOTICS [Concomitant]

REACTIONS (8)
  - CARDIAC ARREST [None]
  - GASTROINTESTINAL HAEMORRHAGE [None]
  - HYPOTENSION [None]
  - HYPOXIA [None]
  - MYOCARDIAL INFARCTION [None]
  - OEDEMA [None]
  - SEPSIS [None]
  - WEIGHT INCREASED [None]
